FAERS Safety Report 8050079-3 (Version None)
Quarter: 2012Q1

REPORT INFORMATION
  Report Type: 
  Country: None (occurrence: None)
  Receive Date: 20120111
  Receipt Date: 20101019
  Transmission Date: 20120608
  Serious: No
  Sender: FDA-Public Use
  Company Number: 2010-06049

PATIENT
  Sex: Female

DRUGS (1)
  1. TUBERSOL [Suspect]
     Indication: IMMUNISATION
     Dosage: 0.5 ML, I.M.
     Route: 030
     Dates: start: 20101019, end: 20101019

REACTIONS (3)
  - DYSGEUSIA [None]
  - WRONG DRUG ADMINISTERED [None]
  - FEELING ABNORMAL [None]
